FAERS Safety Report 17165293 (Version 1)
Quarter: 2019Q4

REPORT INFORMATION
  Report Type: Spontaneous
  Country: JP (occurrence: JP)
  Receive Date: 20191217
  Receipt Date: 20191217
  Transmission Date: 20200122
  Serious: Yes (Other)
  Sender: FDA-Public Use
  Company Number: JP-MYLANLABS-2019M1123841

PATIENT
  Age: 93 Year
  Sex: Female
  Weight: 26.5 kg

DRUGS (2)
  1. SODIUM CHLORIDE. [Concomitant]
     Active Substance: SODIUM CHLORIDE
     Indication: STAPHYLOCOCCAL INFECTION
     Dosage: 100 UNK, BID
     Route: 042
     Dates: start: 20191202, end: 201912
  2. VANCOMYCIN HYDROCHLORIDE INJ. 0.5G ^PFIZER^ [Suspect]
     Active Substance: VANCOMYCIN HYDROCHLORIDE
     Indication: STAPHYLOCOCCAL INFECTION
     Dosage: 0.5 GRAM, BID
     Route: 042
     Dates: start: 20191202, end: 201912

REACTIONS (2)
  - Product preparation error [Unknown]
  - Drug ineffective [Unknown]
